FAERS Safety Report 7406973-7 (Version None)
Quarter: 2011Q2

REPORT INFORMATION
  Report Type: 
  Country: None (occurrence: None)
  Receive Date: 20110411
  Receipt Date: 20100924
  Transmission Date: 20111010
  Serious: Yes (Hospitalization, Other)
  Sender: FDA-Public Use
  Company Number: US-BAYER-201028170NA

PATIENT
  Age: 32 Year
  Sex: Female
  Weight: 77.098 kg

DRUGS (8)
  1. YAZ [Suspect]
     Indication: PREMENSTRUAL SYNDROME
  2. ALLEGRA [Concomitant]
     Indication: SEASONAL ALLERGY
     Dosage: UNK UNK, QD
     Dates: start: 19900101
  3. OCELLA [Suspect]
     Indication: CONTRACEPTION
     Dosage: UNK UNK, QD
     Dates: start: 20090401, end: 20091101
  4. SARAFEM [Concomitant]
     Indication: PREMENSTRUAL SYNDROME
     Dosage: UNK UNK, QD
     Dates: start: 20070101
  5. OCELLA [Suspect]
     Indication: PREMENSTRUAL SYNDROME
  6. FLONASE [Concomitant]
     Indication: SEASONAL ALLERGY
     Dosage: UNK
     Dates: start: 20000101
  7. CETIRIZINE HCL [Concomitant]
  8. YAZ [Suspect]
     Indication: CONTRACEPTION
     Dosage: UNK UNK, QD
     Route: 048
     Dates: start: 20080401, end: 20090415

REACTIONS (7)
  - CHOLECYSTITIS CHRONIC [None]
  - GALLBLADDER INJURY [None]
  - CONSTIPATION [None]
  - ABDOMINAL PAIN [None]
  - CHOLELITHIASIS [None]
  - ABDOMINAL DISTENSION [None]
  - BILIARY COLIC [None]
